FAERS Safety Report 5413310-6 (Version None)
Quarter: 2007Q3

REPORT INFORMATION
  Report Type: 
  Country: None (occurrence: None)
  Receive Date: 20070717
  Receipt Date: 20070501
  Transmission Date: 20080115
  Serious: Yes (Hospitalization)
  Sender: FDA-Public Use
  Company Number: 2007US001047

PATIENT
  Age: 57 Year
  Sex: Male
  Weight: 122.4 kg

DRUGS (1)
  1. ADENOSCAN [Suspect]
     Indication: SCAN MYOCARDIAL PERFUSION
     Dosage: PARENTERAL
     Route: 051

REACTIONS (1)
  - SYNCOPE [None]
